FAERS Safety Report 8277168-2 (Version None)
Quarter: 2012Q2

REPORT INFORMATION
  Report Type: 
  Country: None (occurrence: None)
  Receive Date: 20120412
  Receipt Date: 20120403
  Transmission Date: 20120825
  Serious: Yes (Other)
  Sender: FDA-Public Use
  Company Number: CA-ASTRAZENECA-2012SE15695

PATIENT
  Age: 59 Year

DRUGS (5)
  1. ADVAIR DISKUS 100/50 [Concomitant]
     Indication: ASTHMA
  2. RABEPRAZOLE SODIUM [Concomitant]
     Indication: GASTROOESOPHAGEAL REFLUX DISEASE
  3. SEIZURE MEDS [Concomitant]
  4. CRESTOR [Suspect]
     Route: 048
  5. VITAMIN [Concomitant]

REACTIONS (11)
  - TREMOR [None]
  - GASTROOESOPHAGEAL REFLUX DISEASE [None]
  - POLLAKIURIA [None]
  - HEADACHE [None]
  - CONVULSION [None]
  - OROPHARYNGEAL PAIN [None]
  - INSOMNIA [None]
  - DYSPHONIA [None]
  - NASOPHARYNGITIS [None]
  - MIGRAINE [None]
  - CHEST DISCOMFORT [None]
